FAERS Safety Report 8433122-9 (Version None)
Quarter: 2012Q2

REPORT INFORMATION
  Report Type: 
  Country: None (occurrence: None)
  Receive Date: 20120607
  Receipt Date: 20120524
  Transmission Date: 20120825
  Serious: Yes (Other)
  Sender: FDA-Public Use
  Company Number: 2012TP000170

PATIENT
  Age: 48 Year
  Sex: Female

DRUGS (18)
  1. PANTOPRAZOLE [Concomitant]
  2. MIDAZOLAM [Concomitant]
  3. LIDODERM [Suspect]
     Indication: ABDOMINAL PAIN
     Dosage: 1 PATCH;1X;TOP
     Route: 061
  4. METRONIDAZOLE [Concomitant]
  5. KETAMINE HCL [Concomitant]
  6. FUROSEMIDE [Concomitant]
  7. ESCITALOPRAM [Concomitant]
  8. FENTANYL [Concomitant]
  9. PROPOFOL [Concomitant]
  10. SUCCINYLCHOLINE CHLORIDE [Concomitant]
  11. VECURONIUM BROMIDE [Concomitant]
  12. LIDOCAINE [Concomitant]
  13. METHADONE HCL [Concomitant]
  14. HYDROMORPHONE HCL [Concomitant]
  15. CIPROFLOXACIN HYDROCHLORIDE [Concomitant]
  16. SUMATRIPTAN [Concomitant]
  17. TEMAZEPAM [Concomitant]
  18. DESFLURANE [Concomitant]

REACTIONS (1)
  - METHAEMOGLOBINAEMIA [None]
